FAERS Safety Report 20087135 (Version 1)
Quarter: 2021Q4

REPORT INFORMATION
  Report Type: Spontaneous
  Country: PL (occurrence: PL)
  Receive Date: 20211118
  Receipt Date: 20211118
  Transmission Date: 20220303
  Serious: Yes (Other)
  Sender: FDA-Public Use
  Company Number: PL-MLMSERVICE-20211101-3195870-1

PATIENT
  Age: 44 Year
  Sex: Female

DRUGS (7)
  1. GEMCITABINE HYDROCHLORIDE [Suspect]
     Active Substance: GEMCITABINE HYDROCHLORIDE
     Indication: Leiomyosarcoma metastatic
     Dosage: 900 MG/M2, ON DAYS 1 AND 8 EVERY 3 WEEKS
     Dates: start: 2019
  2. DOCETAXEL [Suspect]
     Active Substance: DOCETAXEL
     Indication: Leiomyosarcoma metastatic
     Dosage: 100 MG/M2, ON DAY 1 EVERY 3 WEEKS
     Route: 065
     Dates: start: 2019
  3. TACROLIMUS [Concomitant]
     Active Substance: TACROLIMUS
     Indication: Immunosuppressant drug therapy
     Dosage: UNK UNK, UNKNOWN
     Dates: start: 2016, end: 201901
  4. TACROLIMUS [Concomitant]
     Active Substance: TACROLIMUS
     Dosage: 6 NG/ML
     Route: 065
     Dates: start: 201901
  5. PREDNISONE [Concomitant]
     Active Substance: PREDNISONE
     Indication: Immunosuppressant drug therapy
     Dosage: UNK UNK, UNKNOWN
     Route: 066
     Dates: start: 2016
  6. MYCOPHENOLATE SODIUM [Concomitant]
     Active Substance: MYCOPHENOLATE SODIUM
     Indication: Immunosuppressant drug therapy
     Dosage: 1260 MG, DAILY
     Route: 065
     Dates: start: 2016, end: 201901
  7. MYCOPHENOLATE SODIUM [Concomitant]
     Active Substance: MYCOPHENOLATE SODIUM
     Dosage: 540 MG, DAILY
     Route: 065
     Dates: start: 201901

REACTIONS (5)
  - Toxicity to various agents [Unknown]
  - Peripheral sensory neuropathy [Unknown]
  - Skin exfoliation [Unknown]
  - Oedema peripheral [Unknown]
  - Off label use [Unknown]

NARRATIVE: CASE EVENT DATE: 20190101
